FAERS Safety Report 7591907-5 (Version None)
Quarter: 2011Q3

REPORT INFORMATION
  Report Type: 
  Country: None (occurrence: None)
  Receive Date: 20110706
  Receipt Date: 20110701
  Transmission Date: 20111222
  Serious: Yes (Death)
  Sender: FDA-Public Use
  Company Number: JP-ASTELLAS-2011JP004127

PATIENT
  Age: 69 Year
  Sex: Female

DRUGS (6)
  1. PROGRAF [Suspect]
     Indication: MYASTHENIA GRAVIS
     Dosage: 3 MG, UNKNOWN/D
     Route: 048
     Dates: start: 20090316
  2. DIOVAN [Concomitant]
     Dosage: 80 MG, UNKNOWN/D
     Route: 048
     Dates: start: 20080424
  3. LASIX [Concomitant]
     Dosage: 20 MG, UNKNOWN/D
     Route: 048
     Dates: start: 20090511
  4. FOSAMAC [Concomitant]
     Dosage: 5 MG, UNKNOWN/D
     Route: 048
     Dates: start: 20060302
  5. PREDNISOLONE [Suspect]
     Dosage: 40 MG, UNKNOWN/D
     Route: 048
     Dates: start: 19990401
  6. OMEPRAZOLE [Concomitant]
     Dosage: 20 MG, UNKNOWN/D
     Route: 048
     Dates: start: 20070131

REACTIONS (1)
  - PNEUMOCYSTIS JIROVECI PNEUMONIA [None]
